FAERS Safety Report 8831218 (Version 1)
Quarter: 2012Q4

REPORT INFORMATION
  Report Type: 
  Country: DK (occurrence: DK)
  Receive Date: 20121008
  Receipt Date: 20121008
  Transmission Date: 20130627
  Serious: Yes (Hospitalization)
  Sender: FDA-Public Use
  Company Number: DK-009507513-1208DNK011331

PATIENT
  Age: 74 Year
  Sex: Male
  Weight: 56 kg

DRUGS (9)
  1. SINEMET [Suspect]
     Indication: PARKINSON^S DISEASE
     Dosage: 6 DF, qd
     Route: 048
  2. SINEMET [Suspect]
     Indication: PARKINSON^S DISEASE
     Dosage: 5 DF, qd
     Route: 048
  3. SINEMET [Suspect]
     Dosage: UNK
  4. VESICARE [Suspect]
     Indication: MICTURITION URGENCY
     Dosage: 10 mg, UNK
  5. VESICARE [Suspect]
     Dosage: 5 mg, UNK
  6. COMTESS [Concomitant]
  7. AMANTADINE HYDROCHLORIDE [Concomitant]
  8. IBUPROFEN [Concomitant]
  9. SINALFA [Concomitant]

REACTIONS (3)
  - Hallucination [Recovering/Resolving]
  - Parkinson^s disease [Unknown]
  - Overdose [Unknown]
